FAERS Safety Report 6509907-2 (Version None)
Quarter: 2009Q4

REPORT INFORMATION
  Report Type: 
  Country: None (occurrence: None)
  Receive Date: 20091222
  Receipt Date: 20091211
  Transmission Date: 20100525
  Serious: Yes (Other)
  Sender: FDA-Public Use
  Company Number: PHHY2009US55263

PATIENT
  Sex: Female

DRUGS (2)
  1. RECLAST [Suspect]
  2. MOBIC [Concomitant]
     Dosage: 15 MG

REACTIONS (5)
  - INFLUENZA LIKE ILLNESS [None]
  - OEDEMA PERIPHERAL [None]
  - PAIN [None]
  - RHEUMATOID ARTHRITIS [None]
  - SWOLLEN TONGUE [None]
